FAERS Safety Report 7459880-8 (Version None)
Quarter: 2011Q2

REPORT INFORMATION
  Report Type: 
  Country: None (occurrence: None)
  Receive Date: 20110505
  Receipt Date: 20110502
  Transmission Date: 20111010
  Serious: Yes (Other)
  Sender: FDA-Public Use
  Company Number: BR-PFIZER INC-2011057818

PATIENT
  Age: 51 Year
  Sex: Male

DRUGS (2)
  1. CAVERJECT [Suspect]
     Route: 017
  2. PAPAVERINE [Suspect]

REACTIONS (2)
  - PROSTATE CANCER [None]
  - DRUG INEFFECTIVE [None]
